FAERS Safety Report 16649511 (Version 4)
Quarter: 2019Q4

REPORT INFORMATION
  Report Type: Spontaneous
  Country: US (occurrence: US)
  Receive Date: 20190730
  Receipt Date: 20191204
  Transmission Date: 20200122
  Serious: Yes (Hospitalization)
  Sender: FDA-Public Use
  Company Number: US-LEXICON PHARMACEUTICALS, INC-19-1606-00736

PATIENT
  Sex: Female

DRUGS (10)
  1. GAS-X [Concomitant]
     Active Substance: DIMETHICONE
  2. XERMELO [Suspect]
     Active Substance: TELOTRISTAT ETHYL
     Indication: CARCINOID SYNDROME
     Route: 048
     Dates: start: 20180518
  3. LEVOTHYROXINE. [Concomitant]
     Active Substance: LEVOTHYROXINE
  4. VITAMIN C [Concomitant]
     Active Substance: ASCORBIC ACID
  5. VITAMIN B COMPLEX [Concomitant]
     Active Substance: CYANOCOBALAMIN\DEXPANTHENOL\NIACINAMIDE\PYRIDOXINE HYDROCHLORIDE\RIBOFLAVIN 5^-PHOSPHATE SODIUM\THIAMINE HYDROCHLORIDE\VITAMIN B COMPLEX
  6. VAGIFEM [Concomitant]
     Active Substance: ESTRADIOL
  7. ONE DAILY [Concomitant]
  8. MAGNESIUM [Concomitant]
     Active Substance: MAGNESIUM
  9. VALIUM [Concomitant]
     Active Substance: DIAZEPAM
  10. PROBIOTIC [Concomitant]
     Active Substance: PROBIOTICS NOS

REACTIONS (4)
  - Road traffic accident [Unknown]
  - Flatulence [Unknown]
  - Abdominal distension [Unknown]
  - Malaise [Unknown]
